FAERS Safety Report 18331700 (Version 2)
Quarter: 2021Q1

REPORT INFORMATION
  Report Type: Spontaneous
  Country: US (occurrence: US)
  Receive Date: 20200930
  Receipt Date: 20210222
  Transmission Date: 20210419
  Serious: No
  Sender: FDA-Public Use
  Company Number: US-MYLANLABS-2020M1070427

PATIENT
  Sex: Female
  Weight: 39 kg

DRUGS (1)
  1. EPINEPHRINE INJECTION USP AUTO?INJECTOR [Suspect]
     Active Substance: EPINEPHRINE
     Indication: FOOD ALLERGY
     Dosage: UNKNOWN
     Route: 065

REACTIONS (1)
  - Product quality issue [None]
